FAERS Safety Report 7531109-1 (Version None)
Quarter: 2011Q2

REPORT INFORMATION
  Report Type: 
  Country: None (occurrence: None)
  Receive Date: 20110527
  Receipt Date: 20110523
  Transmission Date: 20111010
  Serious: Yes (Other)
  Sender: FDA-Public Use
  Company Number: 2010SP065362

PATIENT
  Age: 21 Year
  Sex: Female
  Weight: 59 kg

DRUGS (2)
  1. PHENOBARBITAL [Concomitant]
  2. IMPLANON [Suspect]
     Indication: CONTRACEPTION
     Dosage: 68 MG; SBDE
     Dates: start: 20071009, end: 20101206

REACTIONS (6)
  - HAEMORRHAGE [None]
  - DRUG EXPOSURE DURING PREGNANCY [None]
  - ECTOPIC PREGNANCY [None]
  - PAIN [None]
  - PREGNANCY WITH IMPLANT CONTRACEPTIVE [None]
  - INCORRECT DRUG ADMINISTRATION DURATION [None]
